FAERS Safety Report 4316212-1 (Version None)
Quarter: 2004Q1

REPORT INFORMATION
  Report Type: 
  Country: None (occurrence: None)
  Receive Date: 20040312
  Receipt Date: 20040216
  Transmission Date: 20041129
  Serious: Yes (Hospitalization)
  Sender: FDA-Public Use
  Company Number: DE-GLAXOSMITHKLINE-D0043190A

PATIENT
  Age: 14 Year
  Sex: Female

DRUGS (2)
  1. VIANI MITE [Suspect]
     Indication: ASTHMA
     Route: 055
  2. AARANE [Concomitant]
     Indication: ASTHMA
     Route: 055
     Dates: end: 20030101

REACTIONS (1)
  - BREAST ABSCESS [None]
